FAERS Safety Report 16782438 (Version 1)
Quarter: 2019Q3

REPORT INFORMATION
  Report Type: Spontaneous
  Country: US (occurrence: US)
  Receive Date: 20190906
  Receipt Date: 20190906
  Transmission Date: 20191005
  Serious: Yes (Hospitalization, Other)
  Sender: FDA-Public Use
  Company Number: US-NOVOPROD-682529

PATIENT
  Age: 76 Year
  Sex: Male

DRUGS (2)
  1. NOVOLIN 70/30 [Suspect]
     Active Substance: INSULIN HUMAN
     Dosage: 3-10 UNTS PER DAY
     Route: 058
  2. NOVOLIN 70/30 [Suspect]
     Active Substance: INSULIN HUMAN
     Indication: TYPE 2 DIABETES MELLITUS
     Dosage: 3-10 UNITS PER DAY
     Route: 058

REACTIONS (5)
  - Gangrene [Recovered/Resolved]
  - Clostridium difficile infection [Not Recovered/Not Resolved]
  - Iliac artery occlusion [Recovered/Resolved]
  - Foot deformity [Recovered/Resolved]
  - Skin ulcer [Recovered/Resolved]

NARRATIVE: CASE EVENT DATE: 201902
